FAERS Safety Report 11650111 (Version 2)
Quarter: 2015Q4

REPORT INFORMATION
  Report Type: Report from Study
  Country: IN (occurrence: IN)
  Receive Date: 20151021
  Receipt Date: 20151021
  Transmission Date: 20160304
  Serious: Yes (Death)
  Sender: FDA-Public Use
  Company Number: PHHY2015IN134475

PATIENT
  Age: 49 Year
  Sex: Female

DRUGS (1)
  1. VOTRIENT [Suspect]
     Active Substance: PAZOPANIB HYDROCHLORIDE
     Indication: RENAL CELL CARCINOMA
     Dosage: 2 DF(400 MG), UNK
     Route: 048
     Dates: start: 201402

REACTIONS (3)
  - Lung neoplasm malignant [Fatal]
  - Second primary malignancy [Fatal]
  - Bone cancer metastatic [Fatal]
